FAERS Safety Report 4452516-X (Version None)
Quarter: 2004Q3

REPORT INFORMATION
  Report Type: 
  Country: None (occurrence: None)
  Receive Date: 20040916
  Receipt Date: 20040906
  Transmission Date: 20050211
  Serious: Yes (Hospitalization)
  Sender: FDA-Public Use
  Company Number: 2003037312

PATIENT
  Age: 75 Year
  Sex: Male
  Weight: 74 kg

DRUGS (10)
  1. NORVASC [Suspect]
     Indication: HYPERTENSION
     Dosage: 2.5 MG, ORAL
     Route: 048
     Dates: start: 20030624, end: 20030730
  2. AMLODIPINE BESYLATE [Suspect]
     Indication: HYPERTENSION
     Dosage: (1 IN 1 D), ORAL
     Route: 048
     Dates: end: 20030623
  3. TOCOPHERYL NICOTINATE (TOCOPHERYL NICOTINATE) [Concomitant]
  4. MECOBALAMIN (MECOBALAMIN) [Concomitant]
  5. MAGNESIUM OXIDE (MAGNESIUM OXIDE) [Concomitant]
  6. LIMAPROST (LIMAPROST) [Concomitant]
  7. FUROSEMIDE [Concomitant]
  8. BUFFERIN [Concomitant]
  9. ESTAZOLAM [Concomitant]
  10. SENNA LEAF (SENNA LEAF) [Concomitant]

REACTIONS (4)
  - DIABETIC NEPHROPATHY [None]
  - DRUG EFFECT DECREASED [None]
  - HYPERGLYCAEMIA [None]
  - OEDEMA PERIPHERAL [None]
